FAERS Safety Report 6139546-7 (Version None)
Quarter: 2009Q1

REPORT INFORMATION
  Report Type: 
  Country: None (occurrence: None)
  Receive Date: 20090326
  Receipt Date: 20090318
  Transmission Date: 20090719
  Serious: Yes (Death)
  Sender: FDA-Public Use
  Company Number: 200914799

PATIENT
  Age: 70 Year
  Sex: Female
  Weight: 55 kg

DRUGS (7)
  1. VIVAGLOBIN [Suspect]
     Indication: HYPOPROTEINAEMIA
     Dosage: 10 ML DAILY SC, 20 ML DAILY SC
     Route: 058
     Dates: start: 20090217
  2. VIVAGLOBIN [Suspect]
     Indication: HYPOPROTEINAEMIA
     Dosage: 10 ML DAILY SC, 20 ML DAILY SC
     Route: 058
     Dates: start: 20090218
  3. VIVAGLOBIN [Suspect]
     Indication: HYPOPROTEINAEMIA
     Dosage: 10 ML DAILY SC, 20 ML DAILY SC
     Route: 058
     Dates: start: 20090225
  4. VIVAGLOBIN [Suspect]
     Indication: HYPOPROTEINAEMIA
     Dosage: 10 ML DAILY SC, 20 ML DAILY SC
     Route: 058
     Dates: start: 20090303
  5. DIGITOXIN TAB [Concomitant]
  6. XIPAMID [Concomitant]
  7. DELIX [Concomitant]

REACTIONS (5)
  - ANAEMIA [None]
  - CARDIAC FAILURE [None]
  - CARDIOMYOPATHY [None]
  - CONFUSIONAL STATE [None]
  - GENERAL PHYSICAL HEALTH DETERIORATION [None]
